FAERS Safety Report 8815557 (Version 1)
Quarter: 2012Q4

REPORT INFORMATION
  Report Type: 
  Country: IT (occurrence: IT)
  Receive Date: 20120928
  Receipt Date: 20120928
  Transmission Date: 20130627
  Serious: Yes (Hospitalization, Other)
  Sender: FDA-Public Use
  Company Number: CHPA2012IT020554

PATIENT
  Age: 79 Year
  Sex: Female
  Weight: 69 kg

DRUGS (2)
  1. IBUPROFEN [Suspect]
     Indication: SCIATICA
     Dosage: 1200 mg per day
     Route: 048
     Dates: start: 20120605, end: 20120625
  2. CEFTRIAXONE [Suspect]
     Indication: URINARY TRACT INFECTION
     Dosage: 1 DF, QD
     Route: 030
     Dates: start: 20120630, end: 20120706

REACTIONS (6)
  - Decreased appetite [Recovered/Resolved]
  - Hepatitis acute [Recovered/Resolved]
  - Jaundice [Recovered/Resolved]
  - Nausea [Recovered/Resolved]
  - Vomiting [Recovered/Resolved]
  - Drug abuse [Unknown]
